FAERS Safety Report 8613484 (Version 2)
Quarter: 2014Q1

REPORT INFORMATION
  Report Type: Spontaneous
  Country: US (occurrence: US)
  Receive Date: 20120614
  Receipt Date: 20140109
  Transmission Date: 20141002
  Serious: Yes (Disabling, Other)
  Sender: FDA-Public Use
  Company Number: US-ASTRAZENECA-2012SE35823

PATIENT
  Age: 54 Year
  Sex: Female
  Weight: 77.1 kg

DRUGS (12)
  1. NEXIUM [Suspect]
     Indication: GASTROOESOPHAGEAL REFLUX DISEASE
     Dosage: 20 MG 2 IN TH AM AND 2 IN THE PM FOR 2 MONTHS
     Route: 048
  2. NEXIUM [Suspect]
     Indication: GASTRIC ULCER
     Dosage: 20 MG 2 IN TH AM AND 2 IN THE PM FOR 2 MONTHS
     Route: 048
  3. NEXIUM [Suspect]
     Indication: GASTROOESOPHAGEAL REFLUX DISEASE
     Route: 048
     Dates: start: 2000, end: 2001
  4. NEXIUM [Suspect]
     Indication: GASTRIC ULCER
     Route: 048
     Dates: start: 2000, end: 2001
  5. PRILOSEC [Suspect]
     Indication: GASTROOESOPHAGEAL REFLUX DISEASE
     Dosage: AFTER TAKING NEXIUM FOR OVER A YEAR
     Route: 048
  6. PRILOSEC [Suspect]
     Indication: GASTRIC ULCER
     Dosage: AFTER TAKING NEXIUM FOR OVER A YEAR
     Route: 048
  7. PREVACID OTC [Concomitant]
     Indication: GASTROOESOPHAGEAL REFLUX DISEASE
  8. PREVACID OTC [Concomitant]
     Indication: GASTRIC ULCER
  9. PEPCID [Concomitant]
     Dates: start: 2004
  10. TUMS [Concomitant]
     Dosage: TAKEN AS NEEDED
  11. TOPAMAX [Concomitant]
     Indication: MIGRAINE
  12. OXYCODONE [Concomitant]
     Indication: PAIN
     Dosage: 5 - 325 MG AS NEEDED

REACTIONS (6)
  - Spinal fracture [Unknown]
  - Fall [Unknown]
  - Osteoporosis [Unknown]
  - Multiple fractures [Unknown]
  - Lower limb fracture [Unknown]
  - Bone disorder [Unknown]
